FAERS Safety Report 6417502-9 (Version None)
Quarter: 2009Q4

REPORT INFORMATION
  Report Type: 
  Country: None (occurrence: None)
  Receive Date: 20091028
  Receipt Date: 20091020
  Transmission Date: 20100525
  Serious: Yes (Hospitalization)
  Sender: FDA-Public Use
  Company Number: US-BRISTOL-MYERS SQUIBB COMPANY-14655450

PATIENT
  Age: 25 Year
  Sex: Female
  Weight: 171 kg

DRUGS (2)
  1. BLINDED: ARIPIPRAZOLE IM [Suspect]
     Indication: SCHIZOPHRENIA
     Dates: start: 20090506, end: 20090603
  2. BLINDED: PLACEBO [Suspect]
     Indication: SCHIZOPHRENIA
     Dates: end: 20090603

REACTIONS (3)
  - DELUSION [None]
  - HALLUCINATION [None]
  - PARANOIA [None]
